FAERS Safety Report 7481080-6 (Version None)
Quarter: 2011Q2

REPORT INFORMATION
  Report Type: 
  Country: None (occurrence: None)
  Receive Date: 20110516
  Receipt Date: 20110428
  Transmission Date: 20111010
  Serious: Yes (Other)
  Sender: FDA-Public Use
  Company Number: US-BAYER-200934367NA

PATIENT
  Sex: Female
  Weight: 92.7 kg

DRUGS (8)
  1. PAVULON [Concomitant]
     Dosage: UNK
     Dates: start: 20050531
  2. LIDOCAINE [Concomitant]
     Dosage: UNK
     Dates: start: 20050531
  3. HEPARIN [Concomitant]
     Dosage: UNK
     Dates: start: 20050531
  4. LASIX [Concomitant]
     Dosage: UNK
     Dates: start: 20050531
  5. TRASYLOL [Suspect]
     Indication: PRODUCT USED FOR UNKNOWN INDICATION
  6. INSULIN HUMAN [Concomitant]
     Dosage: UNK
     Dates: start: 20050531
  7. ZINACEF [Concomitant]
     Dosage: UNK
     Dates: start: 20050531
  8. PROTAMINE SULFATE [Concomitant]
     Dosage: UNK
     Dates: start: 20050531

REACTIONS (12)
  - EMOTIONAL DISTRESS [None]
  - FEAR [None]
  - ANHEDONIA [None]
  - PAIN [None]
  - MULTI-ORGAN FAILURE [None]
  - INJURY [None]
  - NERVOUSNESS [None]
  - RENAL INJURY [None]
  - RENAL FAILURE [None]
  - UNEVALUABLE EVENT [None]
  - DEPRESSION [None]
  - ANXIETY [None]
